FAERS Safety Report 7686393-0 (Version None)
Quarter: 2011Q3

REPORT INFORMATION
  Report Type: 
  Country: None (occurrence: None)
  Receive Date: 20110816
  Receipt Date: 20110803
  Transmission Date: 20111222
  Serious: Yes (Congenital Anomaly, Other)
  Sender: FDA-Public Use
  Company Number: DK-ELI_LILLY_AND_COMPANY-DK201108002385

PATIENT
  Weight: 15 kg

DRUGS (2)
  1. ZYPREXA [Suspect]
     Dosage: 10 MG, QD
     Route: 064
     Dates: start: 20070101
  2. ZYPREXA [Suspect]
     Dosage: 10 MG, QD
     Route: 064
     Dates: start: 20070101

REACTIONS (3)
  - MENTAL RETARDATION [None]
  - MATERNAL EXPOSURE DURING PREGNANCY [None]
  - AUTISM [None]
